FAERS Safety Report 9393167 (Version 1)
Quarter: 2013Q3

REPORT INFORMATION
  Report Type: Spontaneous
  Country: MX (occurrence: MX)
  Receive Date: 20130710
  Receipt Date: 20130710
  Transmission Date: 20140515
  Serious: Yes (Death, Hospitalization)
  Sender: FDA-Public Use
  Company Number: MX-B.I. PHARMACEUTICALS,INC./RIDGEFIELD-2013-MX-00226MX

PATIENT
  Age: 75 Year
  Sex: Male
  Weight: 85 kg

DRUGS (6)
  1. PRADAXAR [Suspect]
     Indication: CEREBROVASCULAR ACCIDENT PROPHYLAXIS
     Dosage: 220 MG
     Route: 048
     Dates: start: 201203
  2. PRADAXAR [Suspect]
     Indication: ATRIAL FIBRILLATION
  3. LISPRO [Concomitant]
     Indication: TYPE 2 DIABETES MELLITUS
     Dosage: 20 U
     Route: 058
  4. LOSARTAN [Concomitant]
     Indication: HYPERTENSION
     Route: 048
     Dates: start: 2003
  5. HYDROCHLOROTHIAZIDE [Concomitant]
     Indication: HYPERTENSION
     Route: 048
     Dates: start: 2003
  6. TENORMIN [Concomitant]
     Indication: HYPERTENSION
     Route: 048
     Dates: start: 2003

REACTIONS (3)
  - Renal failure acute [Fatal]
  - Multi-organ failure [Fatal]
  - Abdominal pain [Unknown]
